FAERS Safety Report 8789852 (Version 1)
Quarter: 2012Q4

REPORT INFORMATION
  Report Type: 
  Country: IT (occurrence: IT)
  Receive Date: 20120917
  Receipt Date: 20120917
  Transmission Date: 20130627
  Serious: Yes (Life-Threatening, Other)
  Sender: FDA-Public Use
  Company Number: IT-ASTRAZENECA-2012SE71777

PATIENT
  Sex: Female

DRUGS (5)
  1. SEROQUEL [Suspect]
     Route: 048
     Dates: start: 20120618, end: 20120618
  2. RISPERDAL [Suspect]
     Dosage: 1 mg/ml Oral drops, solutions, 3 ml in total
     Route: 048
     Dates: start: 20120618, end: 20120618
  3. SEREUPIN [Suspect]
     Route: 048
     Dates: start: 20120618, end: 20120618
  4. SPASMEX [Suspect]
     Route: 048
     Dates: start: 20120618, end: 20120618
  5. KETOPROFEN [Suspect]
     Route: 048
     Dates: start: 20120618, end: 20120618

REACTIONS (2)
  - Self injurious behaviour [Unknown]
  - Drug abuse [Unknown]
